FAERS Safety Report 13351844 (Version 1)
Quarter: 2017Q1

REPORT INFORMATION
  Report Type: Spontaneous
  Country: GB (occurrence: GB)
  Receive Date: 20170320
  Receipt Date: 20170320
  Transmission Date: 20170429
  Serious: Yes (Death)
  Sender: FDA-Public Use
  Company Number: GB-SUNOVION-2017SUN001235

PATIENT

DRUGS (15)
  1. ATORVASTATIN [Concomitant]
     Active Substance: ATORVASTATIN
  2. BISOPROLOL [Concomitant]
     Active Substance: BISOPROLOL
  3. BYDUREON [Concomitant]
     Active Substance: EXENATIDE
  4. LANSOPRAZOLE. [Concomitant]
     Active Substance: LANSOPRAZOLE
  5. METFORMIN [Concomitant]
     Active Substance: METFORMIN HYDROCHLORIDE
  6. VALPROATE SEMISODIUM [Concomitant]
     Active Substance: DIVALPROEX SODIUM
  7. ARIPIPRAZOLE. [Concomitant]
     Active Substance: ARIPIPRAZOLE
  8. CLONAZEPAM. [Concomitant]
     Active Substance: CLONAZEPAM
  9. DOCUSATE [Concomitant]
     Active Substance: DOCUSATE
  10. EPLERENONE. [Concomitant]
     Active Substance: EPLERENONE
  11. HUMALOG MIX50/50 [Concomitant]
     Active Substance: INSULIN LISPRO
  12. INSULIN LISPRO [Concomitant]
     Active Substance: INSULIN LISPRO
  13. LOSARTAN. [Concomitant]
     Active Substance: LOSARTAN
  14. PROMETHAZINE [Concomitant]
     Active Substance: PROMETHAZINE\PROMETHAZINE HYDROCHLORIDE
  15. LATUDA [Suspect]
     Active Substance: LURASIDONE HYDROCHLORIDE
     Indication: SCHIZOAFFECTIVE DISORDER
     Dosage: 148 MG, UNK
     Route: 048
     Dates: start: 20160219, end: 20160518

REACTIONS (2)
  - Myocardial ischaemia [Fatal]
  - Coronary artery disease [Fatal]
